FAERS Safety Report 5989637-6 (Version None)
Quarter: 2008Q4

REPORT INFORMATION
  Report Type: 
  Country: None (occurrence: None)
  Receive Date: 20081208
  Receipt Date: 20081127
  Transmission Date: 20090506
  Serious: Yes (Other)
  Sender: FDA-Public Use
  Company Number: 2008AP003280

PATIENT
  Age: 76 Year
  Sex: Male

DRUGS (9)
  1. AMLODIPINE BESYLATE [Suspect]
     Dosage: 5 MG; QD
  2. TAMSULOSIN HCL [Suspect]
     Dosage: 500 MG; QD
  3. OMEPRAZOLE [Suspect]
     Dosage: 20 MG; QD
  4. RAMIPRIL [Suspect]
     Dosage: 2.5 MG; QD
  5. SERETIDE (SERETIDE MITE) [Suspect]
     Indication: ASTHMA
     Dosage: 1 DF;INH;BID
     Route: 055
     Dates: start: 20051208
  6. THEOPHYLLINE [Suspect]
     Dosage: 300 MG;QD
  7. TIOTROPIUM BROMIDE (TIOTROPIUM BROMIDE) [Suspect]
     Dosage: 1 DF;QD
  8. VENTOLIN [Suspect]
     Indication: ASTHMA
     Dosage: INH
     Route: 055
  9. SIMVASTATIN [Suspect]
     Dosage: 20 MG; QD

REACTIONS (4)
  - ASTHMA [None]
  - CEREBRAL ISCHAEMIA [None]
  - MEMORY IMPAIRMENT [None]
  - TRANSIENT ISCHAEMIC ATTACK [None]
